FAERS Safety Report 4872766-8 (Version None)
Quarter: 2006Q1

REPORT INFORMATION
  Report Type: 
  Country: None (occurrence: None)
  Receive Date: 20060103
  Receipt Date: 20051222
  Transmission Date: 20060701
  Serious: Yes (Life-Threatening)
  Sender: FDA-Public Use
  Company Number: 200510905BNE

PATIENT
  Age: 71 Year
  Sex: Male

DRUGS (8)
  1. ASPIRIN [Suspect]
     Indication: ANALGESIC EFFECT
     Dosage: ORAL
     Route: 048
  2. WARFARIN [Suspect]
     Indication: ATRIAL FIBRILLATION
     Dosage: ORAL
     Route: 048
     Dates: start: 20051101, end: 20051201
  3. DICLOFENAC [Suspect]
     Indication: ANALGESIC EFFECT
     Dosage: ORAL
     Route: 048
  4. AMIODARONE [Concomitant]
  5. OMEPRAZOLE [Concomitant]
  6. QUININE [Concomitant]
  7. ROSUVASTATIN [Concomitant]
  8. FRUSEMIDE [Concomitant]

REACTIONS (2)
  - GASTROINTESTINAL HAEMORRHAGE [None]
  - INTERNATIONAL NORMALISED RATIO INCREASED [None]
